FAERS Safety Report 5748406-2 (Version None)
Quarter: 2008Q2

REPORT INFORMATION
  Report Type: 
  Country: None (occurrence: None)
  Receive Date: 20080523
  Receipt Date: 20080513
  Transmission Date: 20081010
  Serious: Yes (Hospitalization, Other)
  Sender: FDA-Public Use
  Company Number: JP-PFIZER INC-2008036873

PATIENT
  Sex: Female

DRUGS (11)
  1. SALAZOPYRIN [Suspect]
     Indication: COLITIS ULCERATIVE
     Route: 048
     Dates: start: 20080308, end: 20080331
  2. MIYARI BACTERIA [Concomitant]
     Route: 048
  3. PENTCILLIN [Concomitant]
     Route: 042
     Dates: start: 20080223, end: 20080227
  4. GENTACIN [Concomitant]
     Route: 042
     Dates: start: 20080228
  5. PASIL [Concomitant]
     Route: 042
     Dates: start: 20080228
  6. ADONA [Concomitant]
     Route: 042
     Dates: start: 20080305, end: 20080305
  7. TRANSAMIN [Concomitant]
     Route: 042
     Dates: start: 20080305, end: 20080305
  8. NITRAZEPAM [Concomitant]
     Route: 048
  9. AMOBAN [Concomitant]
     Route: 048
  10. TRIAZOLAM [Concomitant]
     Route: 048
  11. LENDORMIN [Concomitant]
     Route: 048

REACTIONS (2)
  - DRUG RASH WITH EOSINOPHILIA AND SYSTEMIC SYMPTOMS [None]
  - NAUSEA [None]
